FAERS Safety Report 9382343 (Version 2)
Quarter: 2013Q3

REPORT INFORMATION
  Report Type: Spontaneous
  Country: FR (occurrence: FR)
  Receive Date: 20130703
  Receipt Date: 20130726
  Transmission Date: 20140515
  Serious: Yes (Other)
  Sender: FDA-Public Use
  Company Number: FR-GLAXOSMITHKLINE-B0902507A

PATIENT
  Age: 64 Year
  Sex: Male

DRUGS (1)
  1. ARZERRA [Suspect]
     Indication: WALDENSTROM^S MACROGLOBULINAEMIA
     Route: 042
     Dates: start: 20130531, end: 20130531

REACTIONS (3)
  - Hyperthermia [Recovered/Resolved]
  - Chills [Recovered/Resolved]
  - Off label use [Unknown]
